FAERS Safety Report 8256044 (Version 2)
Quarter: 2013Q2

REPORT INFORMATION
  Report Type: Spontaneous
  Country: US (occurrence: US)
  Receive Date: 20111121
  Receipt Date: 20130410
  Transmission Date: 20140414
  Serious: No
  Sender: FDA-Public Use
  Company Number: US-BIOGENIDEC-2011BI043099

PATIENT
  Age: 54 Year
  Sex: Female

DRUGS (4)
  1. AVONEX [Suspect]
     Indication: MULTIPLE SCLEROSIS
     Route: 030
  2. AVONEX [Suspect]
     Indication: MULTIPLE SCLEROSIS
     Route: 030
     Dates: start: 20010729, end: 20070806
  3. AVONEX [Suspect]
     Indication: MULTIPLE SCLEROSIS
     Route: 030
     Dates: start: 2007, end: 20070806
  4. AVONEX [Suspect]
     Indication: MULTIPLE SCLEROSIS
     Route: 030
     Dates: start: 20101120

REACTIONS (11)
  - Gastric disorder [Not Recovered/Not Resolved]
  - Adverse event [Recovered/Resolved]
  - Abdominal pain upper [Unknown]
  - Weight decreased [Unknown]
  - Multiple sclerosis relapse [Recovered/Resolved]
  - Influenza like illness [Recovered/Resolved]
  - Hyperthyroidism [Recovered/Resolved]
  - Chills [Recovered/Resolved]
  - Diarrhoea [Unknown]
  - Asthenia [Unknown]
  - Heart rate increased [Unknown]
